FAERS Safety Report 11211382 (Version 1)
Quarter: 2015Q2

REPORT INFORMATION
  Report Type: Spontaneous
  Country: US (occurrence: None)
  Receive Date: 20150619
  Receipt Date: 20150619
  Transmission Date: 20150821
  Serious: Yes (Disabling)
  Sender: FDA-Public Use
  Company Number: None

PATIENT
  Age: 45 Year
  Sex: Female
  Weight: 108.86 kg

DRUGS (7)
  1. TRIATERENE [Concomitant]
  2. CLONAZEPAM. [Suspect]
     Active Substance: CLONAZEPAM
  3. SYNTHROID [Concomitant]
     Active Substance: LEVOTHYROXINE SODIUM
  4. KHLOR-CON [Concomitant]
  5. CENTRUM [Concomitant]
     Active Substance: VITAMINS
  6. DICYCLOMINE 20 MG. FILLED BY CVS 12/31/14 [Suspect]
     Active Substance: DICYCLOMINE HYDROCHLORIDE
     Indication: IRRITABLE BOWEL SYNDROME
     Dosage: MONTHLY
     Route: 048
  7. TRIAMTERENE 37.5 MG CVS [Suspect]
     Active Substance: TRIAMTERENE
     Indication: BLOOD PRESSURE ABNORMAL
     Dosage: MONTHLY
     Route: 048

REACTIONS (2)
  - Abdominal distension [None]
  - Drug effect decreased [None]

NARRATIVE: CASE EVENT DATE: 20150524
